FAERS Safety Report 23967864 (Version 1)
Quarter: 2024Q2

REPORT INFORMATION
  Report Type: Spontaneous
  Country: CN (occurrence: CN)
  Receive Date: 20240612
  Receipt Date: 20240612
  Transmission Date: 20240716
  Serious: Yes (Hospitalization, Other)
  Sender: FDA-Public Use
  Company Number: CN-SA-SAC20240611000179

PATIENT
  Age: 57 Year
  Sex: Male

DRUGS (1)
  1. OXALIPLATIN [Suspect]
     Active Substance: OXALIPLATIN
     Indication: Neoplasm
     Dosage: 200 MG, 1X
     Route: 041
     Dates: start: 20240524, end: 20240524

REACTIONS (10)
  - Demyelination [Recovering/Resolving]
  - Condition aggravated [Recovering/Resolving]
  - Joint contracture [Recovering/Resolving]
  - Respiratory rate increased [Recovering/Resolving]
  - Rhinorrhoea [Recovering/Resolving]
  - Urine output increased [Recovering/Resolving]
  - Dysphonia [Recovering/Resolving]
  - Asthenia [Recovering/Resolving]
  - Tremor [Recovering/Resolving]
  - Vomiting [Recovering/Resolving]

NARRATIVE: CASE EVENT DATE: 20240524
